FAERS Safety Report 14355912 (Version 1)
Quarter: 2018Q1

REPORT INFORMATION
  Report Type: Spontaneous
  Country: ES (occurrence: ES)
  Receive Date: 20180105
  Receipt Date: 20180105
  Transmission Date: 20180509
  Serious: Yes (Other)
  Sender: FDA-Public Use
  Company Number: ES-JNJFOC-20171004090

PATIENT
  Age: 2 Month
  Sex: Male
  Weight: 3.91 kg

DRUGS (1)
  1. INFLIXIMAB, RECOMBINANT [Suspect]
     Active Substance: INFLIXIMAB
     Indication: COLITIS ULCERATIVE
     Route: 064
     Dates: start: 20130601

REACTIONS (11)
  - Bronchitis [Recovered/Resolved]
  - Contraindication to vaccination [Unknown]
  - Oral candidiasis [Recovered/Resolved]
  - Tonsillitis [Recovered/Resolved]
  - Foetal exposure during pregnancy [Recovered/Resolved]
  - Monocyte count decreased [Unknown]
  - Otitis media [Recovered/Resolved]
  - Bronchiolitis [Recovered/Resolved]
  - Respiratory tract infection [Recovered/Resolved]
  - Dermatitis atopic [Recovered/Resolved]
  - Maternal exposure during breast feeding [Unknown]

NARRATIVE: CASE EVENT DATE: 20141229
